FAERS Safety Report 8518593-1 (Version None)
Quarter: 2012Q3

REPORT INFORMATION
  Report Type: 
  Country: None (occurrence: None)
  Receive Date: 20120718
  Receipt Date: 20111027
  Transmission Date: 20120928
  Serious: No
  Sender: FDA-Public Use
  Company Number: US-BRISTOL-MYERS SQUIBB COMPANY-14783658

PATIENT
  Age: 70 Year
  Sex: Female
  Weight: 77 kg

DRUGS (3)
  1. COUMADIN [Suspect]
     Indication: ATRIAL FIBRILLATION
     Dosage: CUIRRENT DOSE IS 2MG/DAY + EVERY 3RD DAY 3MG. PRESCRIPTION:0630029
     Route: 048
     Dates: start: 20090109
  2. COUMADIN [Suspect]
     Indication: TRANSIENT ISCHAEMIC ATTACK
     Dosage: CUIRRENT DOSE IS 2MG/DAY + EVERY 3RD DAY 3MG. PRESCRIPTION:0630029
     Route: 048
     Dates: start: 20090109
  3. TOPROL-XL [Concomitant]

REACTIONS (1)
  - RASH [None]
